FAERS Safety Report 7442946-6 (Version None)
Quarter: 2011Q2

REPORT INFORMATION
  Report Type: 
  Country: None (occurrence: None)
  Receive Date: 20110425
  Receipt Date: 20110425
  Transmission Date: 20111010
  Serious: Yes (Death)
  Sender: FDA-Public Use
  Company Number: None

PATIENT
  Age: 86 Year
  Sex: Male

DRUGS (10)
  1. QVAR 40 [Concomitant]
  2. ZOLPIDEM [Concomitant]
  3. POTASSIUM CHLORIDE [Concomitant]
  4. BACLOFEN [Concomitant]
  5. LISINOPRIL [Concomitant]
  6. LEVOTHROID [Concomitant]
  7. AMPYRA [Suspect]
     Indication: MULTIPLE SCLEROSIS
     Dosage: AMPYRA 10 MG Q12 ORALLY
     Route: 048
     Dates: start: 20100901, end: 20101101
  8. ARIXTRA [Concomitant]
  9. OMEPRAZOLE [Concomitant]
  10. CARVEDILOL [Concomitant]

REACTIONS (10)
  - GENERAL PHYSICAL HEALTH DETERIORATION [None]
  - BLOOD URINE [None]
  - DYSURIA [None]
  - ASTHENIA [None]
  - DIVERTICULUM [None]
  - WHITE BLOOD CELLS URINE POSITIVE [None]
  - HYPOTENSION [None]
  - RENAL FAILURE ACUTE [None]
  - IMPAIRED SELF-CARE [None]
  - COUGH [None]
